FAERS Safety Report 10612852 (Version 1)
Quarter: 2014Q4

REPORT INFORMATION
  Report Type: Spontaneous
  Country: JP (occurrence: JP)
  Receive Date: 20141127
  Receipt Date: 20141127
  Transmission Date: 20150529
  Serious: Yes (Hospitalization)
  Sender: FDA-Public Use
  Company Number: JP-ASTRAZENECA-2014SE90064

PATIENT
  Sex: Male

DRUGS (5)
  1. DROXIDOPA [Suspect]
     Active Substance: DROXIDOPA
     Route: 065
  2. IRON [Concomitant]
     Active Substance: IRON
     Indication: ANAEMIA
  3. ESOMEPRAZOLE [Suspect]
     Active Substance: ESOMEPRAZOLE
     Route: 048
  4. ERYTHROPOIESIS-STIMULATING AGENT [Concomitant]
     Indication: ANAEMIA
  5. FUROSEMIDE. [Suspect]
     Active Substance: FUROSEMIDE
     Route: 065

REACTIONS (1)
  - Haemolytic anaemia [Recovering/Resolving]
